FAERS Safety Report 6480983-9 (Version None)
Quarter: 2009Q4

REPORT INFORMATION
  Report Type: 
  Country: None (occurrence: None)
  Receive Date: 20091208
  Receipt Date: 20091126
  Transmission Date: 20100525
  Serious: Yes (Other)
  Sender: FDA-Public Use
  Company Number: BR-JNJCH-2009030971

PATIENT
  Sex: Female
  Weight: 69 kg

DRUGS (1)
  1. COOL MINT LISTERINE [Suspect]
     Indication: DENTAL DISORDER PROPHYLAXIS
     Dosage: TEXT:UNSPECIFIED - ONCE
     Route: 048
     Dates: start: 20090701, end: 20090701

REACTIONS (4)
  - BURNING SENSATION [None]
  - GLOSSODYNIA [None]
  - OEDEMA MOUTH [None]
  - TONGUE DRY [None]
